FAERS Safety Report 5332374-1 (Version None)
Quarter: 2007Q2

REPORT INFORMATION
  Report Type: 
  Country: None (occurrence: None)
  Receive Date: 20070523
  Receipt Date: 20070517
  Transmission Date: 20071010
  Serious: Yes (Hospitalization, Disabling)
  Sender: FDA-Public Use
  Company Number: B0465560A

PATIENT
  Age: 55 Year
  Sex: Male
  Weight: 83 kg

DRUGS (5)
  1. PAXIL [Suspect]
     Indication: DEPRESSION
     Route: 048
     Dates: start: 20070314, end: 20070326
  2. DEPAS [Concomitant]
     Dosage: 1MG PER DAY
     Route: 048
     Dates: start: 20070314, end: 20070319
  3. STEROID PULSE THERAPY [Concomitant]
     Dosage: 1G PER DAY
  4. ANTIBIOTICS [Concomitant]
  5. ANTIPYRETICS [Concomitant]

REACTIONS (12)
  - ALTERED STATE OF CONSCIOUSNESS [None]
  - BLOOD CHLORIDE DECREASED [None]
  - BLOOD CORTICOTROPHIN INCREASED [None]
  - BLOOD CREATININE DECREASED [None]
  - BLOOD OSMOLARITY ABNORMAL [None]
  - BLOOD POTASSIUM INCREASED [None]
  - BLOOD SODIUM DECREASED [None]
  - ENCEPHALITIS [None]
  - HYPONATRAEMIA [None]
  - INAPPROPRIATE ANTIDIURETIC HORMONE SECRETION [None]
  - URINE OSMOLARITY DECREASED [None]
  - URINE SODIUM INCREASED [None]
